FAERS Safety Report 4579521-7 (Version None)
Quarter: 2005Q1

REPORT INFORMATION
  Report Type: 
  Country: None (occurrence: None)
  Receive Date: 20050210
  Receipt Date: 20050210
  Transmission Date: 20050727
  Serious: Yes (Disabling)
  Sender: FDA-Public Use
  Company Number: None

PATIENT
  Sex: Female
  Weight: 56.6996 kg

DRUGS (1)
  1. KENALOG [Suspect]
     Indication: ARTHROPATHY
     Dosage: INTO A JOINT IN THE RIGHT WRIST
     Dates: start: 20010808

REACTIONS (6)
  - ARTHRALGIA [None]
  - ARTHROPATHY [None]
  - ATROPHY [None]
  - MUSCLE ATROPHY [None]
  - PAIN IN EXTREMITY [None]
  - TENOSYNOVITIS STENOSANS [None]
